FAERS Safety Report 17184649 (Version 1)
Quarter: 2019Q4

REPORT INFORMATION
  Report Type: Spontaneous
  Country: SE (occurrence: SE)
  Receive Date: 20191220
  Receipt Date: 20191220
  Transmission Date: 20200122
  Serious: Yes (Other)
  Sender: FDA-Public Use
  Company Number: SE-MYLANLABS-2019M1125452

PATIENT
  Age: 43 Year
  Sex: Female

DRUGS (1)
  1. TAMOXIFEN MYLAN 20 MG TABLETTEN [Suspect]
     Active Substance: TAMOXIFEN
     Indication: NEOPLASM PROPHYLAXIS
     Dosage: 20 MILLIGRAM, QD
     Dates: start: 20161209

REACTIONS (2)
  - Presyncope [Not Recovered/Not Resolved]
  - Syncope [Not Recovered/Not Resolved]

NARRATIVE: CASE EVENT DATE: 201905
